FAERS Safety Report 9956891 (Version 1)
Quarter: 2014Q1

REPORT INFORMATION
  Report Type: Report from Study
  Country: US (occurrence: US)
  Receive Date: 20140304
  Receipt Date: 20140304
  Transmission Date: 20141002
  Serious: No
  Sender: FDA-Public Use
  Company Number: US-ABBVIE-13P-163-1101670-00

PATIENT
  Sex: 0
  Weight: 71.73 kg

DRUGS (10)
  1. HUMIRA [Suspect]
     Indication: CROHN^S DISEASE
     Dates: start: 201304, end: 201304
  2. HUMIRA [Suspect]
     Dates: start: 201304, end: 201304
  3. HUMIRA [Suspect]
     Dates: start: 201305
  4. SLIPPERY ELM [Concomitant]
     Indication: ALOPECIA
  5. SLIPPERY ELM [Concomitant]
     Indication: CROHN^S DISEASE
  6. VITAMIN C [Concomitant]
     Indication: PRODUCT USED FOR UNKNOWN INDICATION
  7. VITAMINS B-12 [Concomitant]
     Indication: PRODUCT USED FOR UNKNOWN INDICATION
  8. FOLIC ACID [Concomitant]
     Indication: PRODUCT USED FOR UNKNOWN INDICATION
  9. BIOTIN [Concomitant]
     Indication: PRODUCT USED FOR UNKNOWN INDICATION
  10. PROBIOTICS [Concomitant]
     Indication: PRODUCT USED FOR UNKNOWN INDICATION

REACTIONS (1)
  - Alopecia [Not Recovered/Not Resolved]
